FAERS Safety Report 18317120 (Version 1)
Quarter: 2020Q3

REPORT INFORMATION
  Report Type: Spontaneous
  Country: VN (occurrence: VN)
  Receive Date: 20200928
  Receipt Date: 20200928
  Transmission Date: 20201103
  Serious: Yes (Other)
  Sender: FDA-Public Use
  Company Number: VN-ROCHE-2683528

PATIENT
  Age: 66 Year
  Sex: Male

DRUGS (10)
  1. BEVACIZUMAB. [Suspect]
     Active Substance: BEVACIZUMAB
     Dosage: 12 CYCLES WITH CAPECITABIN
     Route: 065
     Dates: start: 20190524, end: 20200112
  2. IRINOTECAN [Suspect]
     Active Substance: IRINOTECAN
     Indication: COLORECTAL CANCER METASTATIC
     Dosage: 6 CYCLES WITH BEVACIZUMAB
     Route: 065
     Dates: start: 20200630, end: 20200825
  3. BEVACIZUMAB. [Suspect]
     Active Substance: BEVACIZUMAB
     Indication: COLORECTAL CANCER METASTATIC
     Route: 065
     Dates: start: 201811, end: 201904
  4. CAPECITABINE. [Suspect]
     Active Substance: CAPECITABINE
     Indication: COLORECTAL CANCER METASTATIC
     Route: 048
     Dates: start: 20190524, end: 20200112
  5. FLUOROURACIL. [Suspect]
     Active Substance: FLUOROURACIL
     Indication: COLORECTAL CANCER METASTATIC
     Route: 065
     Dates: start: 201811, end: 201904
  6. OXALIPLATIN. [Suspect]
     Active Substance: OXALIPLATIN
     Indication: COLORECTAL CANCER METASTATIC
     Route: 065
     Dates: start: 201811, end: 201904
  7. BEVACIZUMAB. [Suspect]
     Active Substance: BEVACIZUMAB
     Dosage: 6 CYCLES WITH FOLFIRI
     Route: 065
     Dates: start: 20200630, end: 20200825
  8. FLUOROURACIL. [Suspect]
     Active Substance: FLUOROURACIL
     Dosage: 6 CYCLES WITH BEVACIZUMAB
     Route: 065
     Dates: start: 20200630, end: 20200825
  9. LEUCOVORIN CALCIUM. [Suspect]
     Active Substance: LEUCOVORIN CALCIUM
     Dosage: 6 CYCLES WITH BEVACIZUMAB
     Route: 065
     Dates: start: 20200630, end: 20200825
  10. LEUCOVORIN CALCIUM. [Suspect]
     Active Substance: LEUCOVORIN CALCIUM
     Indication: COLORECTAL CANCER METASTATIC
     Route: 065
     Dates: start: 201811, end: 201904

REACTIONS (5)
  - Carcinoembryonic antigen increased [Unknown]
  - Metastases to liver [Unknown]
  - Hepatic steatosis [Unknown]
  - Benign prostatic hyperplasia [Unknown]
  - Cholelithiasis [Unknown]

NARRATIVE: CASE EVENT DATE: 20200121
